FAERS Safety Report 6644976-0 (Version None)
Quarter: 2010Q1

REPORT INFORMATION
  Report Type: 
  Country: None (occurrence: None)
  Receive Date: 20100322
  Receipt Date: 20100310
  Transmission Date: 20100710
  Serious: Yes (Other)
  Sender: FDA-Public Use
  Company Number: PHHY2010JP15109

PATIENT

DRUGS (1)
  1. GLEEVEC [Suspect]
     Indication: METASTASES TO LIVER

REACTIONS (4)
  - BONE MARROW FAILURE [None]
  - GASTROINTESTINAL STROMAL TUMOUR [None]
  - HEPATECTOMY [None]
  - MALIGNANT NEOPLASM PROGRESSION [None]
